FAERS Safety Report 8790109 (Version 2)
Quarter: 2012Q4

REPORT INFORMATION
  Report Type: 
  Country: US (occurrence: US)
  Receive Date: 20120917
  Receipt Date: 20121114
  Transmission Date: 20130627
  Serious: Yes (Death)
  Sender: FDA-Public Use
  Company Number: US-CELGENEUS-163-21880-12091211

PATIENT
  Age: 60 Year
  Sex: Male

DRUGS (26)
  1. REVLIMID [Suspect]
     Indication: MULTIPLE MYELOMA
     Dosage: 5 Milligram
     Route: 048
     Dates: start: 20100617
  2. REVLIMID [Suspect]
     Dosage: 10 Milligram
     Route: 048
     Dates: start: 20111207, end: 20120830
  3. SULFAMETHOXAZOLE/TRIMETHOPRIM [Concomitant]
     Indication: DRUG USE FOR UNKNOWN INDICATION
     Dosage: 800-160mg
     Route: 048
  4. LEVAQUIN [Concomitant]
     Indication: DRUG USE FOR UNKNOWN INDICATION
     Dosage: 250 Milligram
     Route: 048
  5. LEVAQUIN [Concomitant]
     Dosage: 500 Milligram
     Route: 048
  6. NEURONTIN [Concomitant]
     Indication: DRUG USE FOR UNKNOWN INDICATION
     Dosage: 300 Milligram
     Route: 048
  7. PROTONIX [Concomitant]
     Indication: DRUG USE FOR UNKNOWN INDICATION
     Dosage: 20 Milligram
     Route: 048
  8. TREANDA [Concomitant]
     Indication: DRUG USE FOR UNKNOWN INDICATION
     Dosage: 25 Milligram
     Route: 065
  9. VALTREX [Concomitant]
     Indication: DRUG USE FOR UNKNOWN INDICATION
     Dosage: 500 Milligram
     Route: 048
  10. VERAPAMIL [Concomitant]
     Indication: DRUG USE FOR UNKNOWN INDICATION
     Dosage: 180 Milligram
     Route: 048
  11. VERAPAMIL [Concomitant]
     Dosage: 120 Milligram
     Route: 048
  12. VITAMIN B COMPLEX [Concomitant]
     Indication: DRUG USE FOR UNKNOWN INDICATION
     Dosage: 1 Capsule
     Route: 048
  13. VITAMIN B12 [Concomitant]
     Indication: DRUG USE FOR UNKNOWN INDICATION
     Dosage: 100 Microgram
     Route: 048
  14. VITAMIN D [Concomitant]
     Indication: DRUG USE FOR UNKNOWN INDICATION
     Dosage: 2000 unit
     Route: 048
  15. VITAMIN D [Concomitant]
     Dosage: 400 unit
     Route: 048
  16. ZOLOFT [Concomitant]
     Indication: DRUG USE FOR UNKNOWN INDICATION
     Dosage: 100 Milligram
     Route: 048
  17. FENTANYL [Concomitant]
     Indication: DRUG USE FOR UNKNOWN INDICATION
     Dosage: 50mcg/hr
     Route: 061
  18. FLUCONAZOLE [Concomitant]
     Indication: DRUG USE FOR UNKNOWN INDICATION
     Dosage: 100 Milligram
     Route: 048
  19. GRANISETRON HCL [Concomitant]
     Indication: DRUG USE FOR UNKNOWN INDICATION
     Dosage: 1 Milligram
     Route: 048
  20. LUNESTA [Concomitant]
     Indication: DRUG USE FOR UNKNOWN INDICATION
     Dosage: 2 Milligram
     Route: 048
  21. PANTOPRAZOLE SODIUM [Concomitant]
     Indication: DRUG USE FOR UNKNOWN INDICATION
     Dosage: 80 Milligram
     Route: 048
  22. PREDNISONE [Concomitant]
     Indication: MULTIPLE MYELOMA
     Dosage: 50 Milligram
     Route: 048
  23. TYLENOL [Concomitant]
     Indication: BONE PAIN
     Dosage: 1500 Milligram
     Route: 048
  24. VALACYCLOVIR [Concomitant]
     Indication: SHINGLES
     Dosage: 500 Tablet
     Route: 048
  25. VICODIN [Concomitant]
     Indication: PAIN
     Dosage: 5mg-500mg tablets
     Route: 048
  26. VITAMIN B6 [Concomitant]
     Indication: PAIN
     Dosage: 100 Milligram
     Route: 048

REACTIONS (1)
  - Plasma cell myeloma [Fatal]
